FAERS Safety Report 4432087-4 (Version None)
Quarter: 2004Q3

REPORT INFORMATION
  Report Type: 
  Country: None (occurrence: None)
  Receive Date: 20040818
  Receipt Date: 20040803
  Transmission Date: 20050211
  Serious: Yes (Hospitalization)
  Sender: FDA-Public Use
  Company Number: 175465

PATIENT
  Age: 47 Year
  Sex: Female
  Weight: 63.5036 kg

DRUGS (7)
  1. AVONEX [Suspect]
     Indication: MULTIPLE SCLEROSIS
     Dosage: 30 MCG QW IM
     Dates: start: 19980623, end: 20030801
  2. AVONEX [Suspect]
     Indication: MULTIPLE SCLEROSIS
     Dosage: 30 MCG QW IM
     Dates: start: 20030801, end: 20040101
  3. BACLOFEN [Concomitant]
  4. PROVIGIL [Concomitant]
  5. CLIMARA /USA/ [Concomitant]
  6. KLONOPIN [Concomitant]
  7. MULTI-VITAMINS [Concomitant]

REACTIONS (7)
  - BALANCE DISORDER [None]
  - BLINDNESS TRANSIENT [None]
  - CONDITION AGGRAVATED [None]
  - FATIGUE [None]
  - MULTIPLE SCLEROSIS [None]
  - MUSCULAR WEAKNESS [None]
  - VERTIGO [None]
